FAERS Safety Report 10493015 (Version 3)
Quarter: 2014Q4

REPORT INFORMATION
  Report Type: Spontaneous
  Country: JP (occurrence: JP)
  Receive Date: 20141003
  Receipt Date: 20141217
  Transmission Date: 20150528
  Serious: Yes (Hospitalization)
  Sender: FDA-Public Use
  Company Number: JP-ROCHE-1468968

PATIENT
  Age: 66 Year
  Sex: Female

DRUGS (9)
  1. TAKEPRON [Concomitant]
     Active Substance: LANSOPRAZOLE
  2. MERISLON [Concomitant]
     Active Substance: BETAHISTINE MESILATE
  3. SYMBICORT [Concomitant]
     Active Substance: BUDESONIDE\FORMOTEROL FUMARATE DIHYDRATE
  4. SPIRIVA [Concomitant]
     Active Substance: TIOTROPIUM BROMIDE MONOHYDRATE
  5. XOLAIR [Suspect]
     Active Substance: OMALIZUMAB
     Indication: ASTHMA
     Route: 058
     Dates: start: 20111117
  6. WARFARIN [Concomitant]
     Active Substance: WARFARIN
  7. MICARDIS [Concomitant]
     Active Substance: TELMISARTAN
  8. MEILAX [Concomitant]
     Active Substance: ETHYL LOFLAZEPATE
  9. OPALMON [Concomitant]
     Active Substance: LIMAPROST

REACTIONS (3)
  - Asthma [Recovered/Resolved]
  - Infection [Recovered/Resolved]
  - Wheezing [Recovered/Resolved]

NARRATIVE: CASE EVENT DATE: 20140923
